FAERS Safety Report 15692298 (Version 1)
Quarter: 2018Q4

REPORT INFORMATION
  Report Type: Report from Study
  Country: None (occurrence: CA)
  Receive Date: 20181205
  Receipt Date: 20181205
  Transmission Date: 20190205
  Serious: Yes (Other)
  Sender: FDA-Public Use
  Company Number: CA-ABBVIE-18K-028-2580069-00

PATIENT
  Sex: Female

DRUGS (2)
  1. HUMIRA [Suspect]
     Active Substance: ADALIMUMAB
     Route: 058
     Dates: start: 2018
  2. HUMIRA [Suspect]
     Active Substance: ADALIMUMAB
     Indication: ANKYLOSING SPONDYLITIS
     Route: 058
     Dates: start: 20180205, end: 201807

REACTIONS (4)
  - Rotator cuff syndrome [Unknown]
  - Calcinosis [Unknown]
  - Ankylosing spondylitis [Recovering/Resolving]
  - Adhesion [Unknown]

NARRATIVE: CASE EVENT DATE: 2018
